FAERS Safety Report 13735405 (Version 1)
Quarter: 2017Q3

REPORT INFORMATION
  Report Type: Spontaneous
  Country: US (occurrence: US)
  Receive Date: 20170710
  Receipt Date: 20170710
  Transmission Date: 20171127
  Serious: No
  Sender: FDA-Public Use
  Company Number: US-PFIZER INC-2017294343

PATIENT
  Sex: Female

DRUGS (1)
  1. ESTRADIOL. [Suspect]
     Active Substance: ESTRADIOL
     Dosage: 10MCG TAKING THAT EVERY THIRD DAY INSTEAD OF ONCE A WEEK.

REACTIONS (2)
  - Drug ineffective [Unknown]
  - Intentional product misuse [Unknown]
